FAERS Safety Report 8343812-4 (Version None)
Quarter: 2012Q2

REPORT INFORMATION
  Report Type: 
  Country: None (occurrence: None)
  Receive Date: 20120508
  Receipt Date: 20120430
  Transmission Date: 20120825
  Serious: Yes (Hospitalization)
  Sender: FDA-Public Use
  Company Number: US-BAYER-2012-029720

PATIENT
  Age: 33 Year
  Sex: Female
  Weight: 153.29 kg

DRUGS (4)
  1. METFORMIN [Concomitant]
     Dosage: UNK, UNK,  BID
     Route: 048
     Dates: start: 20040321, end: 20040413
  2. YASMIN [Suspect]
     Indication: MENSTRUATION IRREGULAR
  3. YASMIN [Suspect]
     Indication: ACNE
     Dosage: 1 TABLET, QD
     Dates: start: 20040501
  4. FERROUS SULFATE TAB [Concomitant]
     Dosage: 325 MG, TID
     Dates: start: 20040219, end: 20040510

REACTIONS (5)
  - DEEP VEIN THROMBOSIS [None]
  - PAIN [None]
  - FEAR [None]
  - ANXIETY [None]
  - INJURY [None]
